FAERS Safety Report 6729066-0 (Version None)
Quarter: 2010Q2

REPORT INFORMATION
  Report Type: 
  Country: None (occurrence: None)
  Receive Date: 20100517
  Receipt Date: 20100402
  Transmission Date: 20101027
  Serious: No
  Sender: FDA-Public Use
  Company Number: US-ABBOTT-10P-163-0636217-00

PATIENT
  Sex: Female
  Weight: 77.18 kg

DRUGS (3)
  1. SIMCOR [Suspect]
     Indication: BLOOD CHOLESTEROL INCREASED
     Dosage: 500/20 MG AT BEDTIME
     Dates: start: 20100315
  2. SIMCOR [Suspect]
     Indication: BLOOD TRIGLYCERIDES
     Dosage: 1000/20 MG
     Dates: start: 20100330
  3. ASPIRIN [Concomitant]
     Indication: DRUG USE FOR UNKNOWN INDICATION

REACTIONS (5)
  - BONE PAIN [None]
  - FLUSHING [None]
  - HEAD DISCOMFORT [None]
  - HEADACHE [None]
  - INSOMNIA [None]
